FAERS Safety Report 9473821 (Version 1)
Quarter: 2013Q3

REPORT INFORMATION
  Report Type: Spontaneous
  Country: US (occurrence: US)
  Receive Date: 20130823
  Receipt Date: 20130823
  Transmission Date: 20140515
  Serious: No
  Sender: FDA-Public Use
  Company Number: US-BRISTOL-MYERS SQUIBB COMPANY-17023912

PATIENT
  Age: 49 Year
  Sex: Female

DRUGS (3)
  1. SPRYCEL (CML) TABS 100 MG [Suspect]
     Indication: CHRONIC MYELOID LEUKAEMIA
     Dates: start: 2010
  2. PERCOCET [Concomitant]
  3. KLONOPIN [Concomitant]

REACTIONS (3)
  - Epistaxis [Unknown]
  - Diarrhoea [Unknown]
  - Contusion [Unknown]
